FAERS Safety Report 9994355 (Version 3)
Quarter: 2014Q2

REPORT INFORMATION
  Report Type: Report from Study
  Country: JP (occurrence: JP)
  Receive Date: 20140311
  Receipt Date: 20140626
  Transmission Date: 20141212
  Serious: Yes (Other)
  Sender: FDA-Public Use
  Company Number: JP-UCBSA-114317

PATIENT
  Age: 49 Year
  Sex: Female
  Weight: 41 kg

DRUGS (13)
  1. CERTOLIZUMAB PEGOL RA [Suspect]
     Indication: RHEUMATOID ARTHRITIS
     Dosage: 200 MG, EV 2 WEEKS(QOW)
     Route: 058
     Dates: start: 20130430
  2. METHOTREXATE [Suspect]
     Indication: RHEUMATOID ARTHRITIS
     Dosage: 12.5MG PER WEEK
     Route: 048
     Dates: end: 20130528
  3. METHOTREXATE [Suspect]
     Dosage: 10MG PER WEEK
     Route: 048
     Dates: start: 20130529
  4. BACTRAMIN [Suspect]
     Indication: PROPHYLAXIS
     Route: 048
     Dates: start: 20130513, end: 20140110
  5. TERBINAFINE [Suspect]
     Indication: ONYCHOMYCOSIS
     Dosage: 1 DF, ONCE DAILY (QD)
     Route: 048
     Dates: start: 20131101, end: 20140110
  6. TALION [Suspect]
     Indication: URTICARIA
     Dosage: DAILY DOSE: 20 MG/DAY
     Route: 048
     Dates: start: 20140110
  7. PROGRAF [Concomitant]
     Indication: RHEUMATOID ARTHRITIS
     Dosage: 1 MG DAILY
     Route: 048
     Dates: end: 20130725
  8. PROGRAF [Concomitant]
     Dosage: 0.5 MG DAILY
     Route: 048
     Dates: start: 20130726, end: 20131031
  9. VOLTAREN [Concomitant]
     Indication: RHEUMATOID ARTHRITIS
     Dosage: 50 MG DAILY
     Route: 048
  10. VOLTAREN [Concomitant]
     Route: 048
  11. PREDNISOLONE [Concomitant]
     Indication: RHEUMATOID ARTHRITIS
     Dosage: 5 MG DAILY
     Route: 048
     Dates: end: 20130726
  12. PREDNISOLONE [Concomitant]
     Dosage: 3.75 MG DAILY
     Route: 048
     Dates: start: 20130727, end: 20130809
  13. PREDNISOLONE [Concomitant]
     Dosage: 2..5 MG DAILY
     Route: 048
     Dates: start: 20130810

REACTIONS (6)
  - Genital haemorrhage [Recovered/Resolved]
  - Asthma [Recovering/Resolving]
  - Breast swelling [Recovered/Resolved]
  - Onychomycosis [Recovering/Resolving]
  - Urticaria [Recovered/Resolved]
  - Influenza [Recovered/Resolved]
